FAERS Safety Report 5472898-X (Version None)
Quarter: 2007Q4

REPORT INFORMATION
  Report Type: 
  Country: None (occurrence: None)
  Receive Date: 20071001
  Receipt Date: 20070924
  Transmission Date: 20080405
  Serious: Yes (Death, Hospitalization)
  Sender: FDA-Public Use
  Company Number: B0460492A

PATIENT
  Age: 39 Year
  Sex: Male
  Weight: 38 kg

DRUGS (10)
  1. COMBIVIR [Suspect]
     Indication: HIV INFECTION
     Dosage: 1TAB TWICE PER DAY
     Route: 048
     Dates: start: 20050209, end: 20070227
  2. KALETRA [Concomitant]
     Indication: DRUG USE FOR UNKNOWN INDICATION
     Route: 065
     Dates: start: 20041001, end: 20070501
  3. VIDEX [Concomitant]
     Indication: DRUG USE FOR UNKNOWN INDICATION
     Route: 065
  4. METHADONE HCL [Concomitant]
     Dosage: 100MG PER DAY
     Route: 065
  5. VIREAD [Concomitant]
     Dosage: 245MG PER DAY
     Route: 065
  6. BACTRIM DS [Concomitant]
     Indication: PROPHYLAXIS
     Dosage: 1TAB SEE DOSAGE TEXT
     Route: 065
     Dates: start: 20040101
  7. XEFO [Concomitant]
     Route: 065
  8. COCAINE [Concomitant]
     Route: 042
  9. BENZODIAZEPINES [Concomitant]
     Route: 065
  10. ZURCAL [Concomitant]
     Route: 065

REACTIONS (12)
  - ANAEMIA MACROCYTIC [None]
  - BLOOD ALKALINE PHOSPHATASE INCREASED [None]
  - BLOOD BILIRUBIN INCREASED [None]
  - HISTIOCYTOSIS HAEMATOPHAGIC [None]
  - HYPERCHROMIC ANAEMIA [None]
  - LYMPHOPENIA [None]
  - MEGAKARYOCYTES INCREASED [None]
  - MYELODYSPLASTIC SYNDROME [None]
  - PANCYTOPENIA [None]
  - SERUM FERRITIN INCREASED [None]
  - THROMBOCYTOPENIA [None]
  - TRANSAMINASES INCREASED [None]
